FAERS Safety Report 6976112-5 (Version None)
Quarter: 2010Q3

REPORT INFORMATION
  Report Type: 
  Country: None (occurrence: None)
  Receive Date: 20100910
  Receipt Date: 20090331
  Transmission Date: 20110219
  Serious: No
  Sender: FDA-Public Use
  Company Number: US-WYE-H08836309

PATIENT
  Age: 55 Year
  Sex: Female

DRUGS (4)
  1. DESVENLAFAXINE SUCCINATE MONOHYDRATE [Suspect]
     Indication: DEPRESSION
     Route: 048
     Dates: start: 20090326, end: 20090327
  2. DESVENLAFAXINE SUCCINATE MONOHYDRATE [Suspect]
     Route: 048
     Dates: start: 20090328
  3. REMERON [Concomitant]
  4. ZYPREXA [Concomitant]

REACTIONS (4)
  - AGITATION [None]
  - DRUG WITHDRAWAL SYNDROME [None]
  - INSOMNIA [None]
  - POOR QUALITY SLEEP [None]
